FAERS Safety Report 8954868 (Version 1)
Quarter: 2012Q4

REPORT INFORMATION
  Report Type: 
  Country: US (occurrence: US)
  Receive Date: 20121210
  Receipt Date: 20121210
  Transmission Date: 20130627
  Serious: Yes (Disabling)
  Sender: FDA-Public Use
  Company Number: US-SANOFI-AVENTIS-2012SA087500

PATIENT
  Sex: Male

DRUGS (3)
  1. LANTUS SOLOSTAR [Suspect]
     Indication: TYPE II DIABETES MELLITUS
     Dosage: Dose:96 unit(s)
     Route: 058
  2. LANTUS SOLOSTAR [Suspect]
     Indication: TYPE II DIABETES MELLITUS
     Dosage: Dose:48 unit(s)
     Route: 058
  3. SOLOSTAR [Suspect]
     Indication: TYPE II DIABETES MELLITUS

REACTIONS (1)
  - Renal failure chronic [Not Recovered/Not Resolved]
